FAERS Safety Report 7414344-2 (Version None)
Quarter: 2011Q2

REPORT INFORMATION
  Report Type: 
  Country: None (occurrence: None)
  Receive Date: 20110414
  Receipt Date: 20110407
  Transmission Date: 20111010
  Serious: Yes (Hospitalization, Other)
  Sender: FDA-Public Use
  Company Number: US-JNJFOC-20100806136

PATIENT
  Sex: Female

DRUGS (5)
  1. LEVAQUIN [Suspect]
     Route: 048
  2. LEVAQUIN [Suspect]
     Dosage: 150 ML
     Route: 042
  3. LEVAQUIN [Suspect]
     Indication: VULVAL ABSCESS
     Route: 048
  4. LEVAQUIN [Suspect]
     Indication: INFECTION
     Route: 048
  5. LEVAQUIN [Suspect]
     Route: 048

REACTIONS (2)
  - TENDON RUPTURE [None]
  - ROTATOR CUFF SYNDROME [None]
